FAERS Safety Report 16855897 (Version 1)
Quarter: 2019Q3

REPORT INFORMATION
  Report Type: Spontaneous
  Country: FR (occurrence: FR)
  Receive Date: 20190926
  Receipt Date: 20190926
  Transmission Date: 20191005
  Serious: Yes (Disabling)
  Sender: FDA-Public Use
  Company Number: FR-TEVA-2019-FR-1114426

PATIENT
  Age: 34 Year
  Sex: Female

DRUGS (1)
  1. COPAXONE [Suspect]
     Active Substance: GLATIRAMER ACETATE
     Dates: start: 20190911

REACTIONS (7)
  - Nausea [Unknown]
  - Wrong technique in product usage process [Unknown]
  - Gait disturbance [Unknown]
  - Pain in extremity [Unknown]
  - Erythema [Unknown]
  - Pyrexia [Unknown]
  - Peripheral swelling [Unknown]

NARRATIVE: CASE EVENT DATE: 20190918
